FAERS Safety Report 9694894 (Version 1)
Quarter: 2013Q4

REPORT INFORMATION
  Report Type: Spontaneous
  Country: US (occurrence: US)
  Receive Date: 20131119
  Receipt Date: 20131119
  Transmission Date: 20140711
  Serious: No
  Sender: FDA-Public Use
  Company Number: US-PFIZER INC-2013326441

PATIENT
  Age: 25 Year
  Sex: Female
  Weight: 100 kg

DRUGS (5)
  1. METFORMIN HCL [Suspect]
     Indication: POLYCYSTIC OVARIES
     Dosage: 500 MG, 2X/DAY
     Dates: start: 200711
  2. METFORMIN HCL [Suspect]
     Dosage: 500 MG, 2X/DAY
     Dates: start: 201306
  3. LYRICA [Suspect]
     Indication: FIBROMYALGIA
     Dosage: 150 MG, 3X/DAY
     Dates: start: 2012, end: 20131029
  4. CYCLOBENZAPRINE [Concomitant]
     Dosage: 10 MG, 1X/DAY
  5. TRAZODONE [Concomitant]
     Indication: SLEEP DISORDER
     Dosage: 50 MG, 2X/DAY

REACTIONS (3)
  - Nasopharyngitis [Not Recovered/Not Resolved]
  - Oropharyngeal pain [Not Recovered/Not Resolved]
  - Off label use [Unknown]
